FAERS Safety Report 8481477-1 (Version None)
Quarter: 2012Q2

REPORT INFORMATION
  Report Type: 
  Country: None (occurrence: None)
  Receive Date: 20120626
  Receipt Date: 20120626
  Transmission Date: 20120825
  Serious: Yes (Other)
  Sender: FDA-Public Use
  Company Number: None

PATIENT
  Sex: Male

DRUGS (3)
  1. PEGASYS [Suspect]
     Dosage: 180MCG ONCE WEEKLY SQ
     Route: 058
     Dates: start: 20120503
  2. INCIVEK [Concomitant]
  3. RIBAVIRIN [Suspect]
     Dosage: 600MG TWICE A DAY PO
     Route: 048
     Dates: start: 20120503

REACTIONS (3)
  - GLOSSODYNIA [None]
  - TONGUE ULCERATION [None]
  - SWOLLEN TONGUE [None]
